FAERS Safety Report 7491991-3 (Version None)
Quarter: 2011Q2

REPORT INFORMATION
  Report Type: 
  Country: None (occurrence: None)
  Receive Date: 20110519
  Receipt Date: 20110512
  Transmission Date: 20111010
  Serious: Yes (Hospitalization, Other)
  Sender: FDA-Public Use
  Company Number: JP-GENZYME-FLUD-1000550

PATIENT
  Sex: Female
  Weight: 43 kg

DRUGS (22)
  1. LEVOFLOXACIN [Concomitant]
     Indication: ANTIBIOTIC PROPHYLAXIS
     Dosage: UNK
     Route: 065
     Dates: start: 20100306, end: 20100422
  2. RANITIDINE HYDROCHLORIDE [Concomitant]
     Indication: VOMITING
     Dosage: UNK
     Route: 065
     Dates: start: 20100312, end: 20100312
  3. MICAFUNGIN SODIUM [Concomitant]
     Indication: ANTIFUNGAL PROPHYLAXIS
     Dosage: UNK
     Route: 065
     Dates: start: 20100312, end: 20100329
  4. FILGRASTIM [Concomitant]
     Indication: APLASTIC ANAEMIA
     Dosage: UNK
     Route: 065
     Dates: start: 20100326, end: 20100405
  5. METHYLPREDNISOLONE SODIUM SUCCINATE [Concomitant]
     Indication: DYSPNOEA
  6. ACETAMINOPHEN [Concomitant]
     Indication: DYSPNOEA
  7. CHLORPHENIRAMINE MALEATE [Concomitant]
     Indication: PYREXIA
     Dosage: UNK
     Route: 065
     Dates: start: 20100312, end: 20100312
  8. GRANISETRON HCL [Concomitant]
     Indication: PROPHYLAXIS OF NAUSEA AND VOMITING
     Dosage: UNK
     Route: 065
     Dates: start: 20100310, end: 20100317
  9. RED BLOOD CELLS, CONCENTRATED [Concomitant]
     Indication: APLASTIC ANAEMIA
     Dosage: UNK
     Route: 065
     Dates: start: 20090224, end: 20100405
  10. CHLORPHENIRAMINE MALEATE [Concomitant]
     Indication: DYSPNOEA
  11. FLUDARA [Suspect]
     Indication: STEM CELL TRANSPLANT
     Dosage: 42 MG, ONCE
     Route: 065
     Dates: start: 20100314, end: 20100317
  12. ACYCLOVIR [Concomitant]
  13. PLATELETS, CONCENTRATED [Concomitant]
     Indication: APLASTIC ANAEMIA
     Dosage: UNK
     Route: 065
     Dates: start: 20090222, end: 20100414
  14. ACETAMINOPHEN [Concomitant]
     Indication: PYREXIA
     Dosage: UNK
     Route: 065
     Dates: start: 20100312, end: 20100421
  15. METHYLPREDNISOLONE SODIUM SUCCINATE [Concomitant]
     Indication: PYREXIA
     Dosage: UNK
     Route: 065
     Dates: start: 20100312, end: 20100313
  16. FLUDARA [Suspect]
     Indication: APLASTIC ANAEMIA
  17. THYMOGLOBULIN [Suspect]
     Indication: PREMEDICATION
     Dosage: 105 MG, ONCE
     Route: 042
     Dates: start: 20100312, end: 20100313
  18. REBAMIPIDE [Concomitant]
     Indication: GASTRITIS PROPHYLAXIS
     Dosage: UNK
     Route: 065
     Dates: start: 20100312
  19. CHLORPHENIRAMINE MALEATE [Concomitant]
     Indication: BACK PAIN
  20. URSODIOL [Concomitant]
     Indication: PROPHYLAXIS
     Dosage: UNK
     Route: 065
     Dates: start: 20100312, end: 20100620
  21. CYCLOPHOSPHAMIDE [Concomitant]
     Indication: APLASTIC ANAEMIA
     Dosage: UNK
     Route: 065
     Dates: start: 20100314, end: 20100317
  22. ACYCLOVIR [Concomitant]
     Indication: ANTIVIRAL PROPHYLAXIS
     Dosage: UNK
     Route: 065
     Dates: start: 20100312, end: 20100625

REACTIONS (18)
  - NAUSEA [None]
  - HEADACHE [None]
  - BACK PAIN [None]
  - LIVER DISORDER [None]
  - DYSPNOEA [None]
  - CYTOMEGALOVIRUS TEST POSITIVE [None]
  - RASH [None]
  - VOMITING [None]
  - URTICARIA [None]
  - ASPERGILLUS TEST POSITIVE [None]
  - HYPERURICAEMIA [None]
  - PYREXIA [None]
  - PRURITUS [None]
  - HYPOKALAEMIA [None]
  - STOMATITIS [None]
  - ACUTE GRAFT VERSUS HOST DISEASE IN SKIN [None]
  - CANDIDA TEST POSITIVE [None]
  - DIARRHOEA [None]
